FAERS Safety Report 8537521-6 (Version None)
Quarter: 2012Q3

REPORT INFORMATION
  Report Type: 
  Country: None (occurrence: None)
  Receive Date: 20120725
  Receipt Date: 20120717
  Transmission Date: 20120928
  Serious: Yes (Other)
  Sender: FDA-Public Use
  Company Number: JP-VERTEX PHARMACEUTICALS INC.-AE-2012-007474

PATIENT
  Age: 62 Year
  Sex: Female

DRUGS (10)
  1. EPINEPHRINE HYDROCHLORIDE [Concomitant]
     Route: 048
     Dates: start: 20120511
  2. ALEROFF [Concomitant]
     Route: 048
     Dates: start: 20120413, end: 20120510
  3. TELAVIC (TELAPREVIR) [Suspect]
     Indication: HEPATITIS C
     Route: 048
     Dates: start: 20120510
  4. MYSER OINTMENT 0.05% [Concomitant]
     Route: 061
     Dates: start: 20120514
  5. RIBAVIRIN [Concomitant]
     Route: 048
     Dates: start: 20120510
  6. PREDNISOLONE [Concomitant]
     Dates: start: 20120515, end: 20120523
  7. PEGINTERFERON ALFA-2B [Concomitant]
     Route: 058
     Dates: start: 20120510
  8. URSO 250 [Concomitant]
     Route: 048
     Dates: end: 20120425
  9. SELTEPNON [Concomitant]
     Route: 048
     Dates: start: 20120418
  10. FENILENE [Concomitant]
     Route: 048
     Dates: start: 20120418

REACTIONS (1)
  - RASH [None]
